FAERS Safety Report 8151034-5 (Version None)
Quarter: 2012Q1

REPORT INFORMATION
  Report Type: 
  Country: None (occurrence: None)
  Receive Date: 20120220
  Receipt Date: 20120210
  Transmission Date: 20120608
  Serious: Yes (Hospitalization, Other)
  Sender: FDA-Public Use
  Company Number: US-MERCK-1110USA00940

PATIENT
  Age: 70 Year
  Sex: Female

DRUGS (3)
  1. FOSAMAX [Suspect]
     Indication: OSTEOPOROSIS
     Route: 048
     Dates: start: 19980101, end: 20090926
  2. METFORMIN [Concomitant]
     Route: 048
  3. LIPITOR [Concomitant]
     Route: 048

REACTIONS (12)
  - FEMUR FRACTURE [None]
  - BONE DISORDER [None]
  - CARPAL TUNNEL SYNDROME [None]
  - DRUG HYPERSENSITIVITY [None]
  - TYPE 2 DIABETES MELLITUS [None]
  - HERPES ZOSTER [None]
  - FOOD ALLERGY [None]
  - FRACTURE NONUNION [None]
  - HYPERTENSION [None]
  - CORONARY ARTERY DISEASE [None]
  - DEVICE FAILURE [None]
  - HYPERLIPIDAEMIA [None]
